FAERS Safety Report 6123154-8 (Version None)
Quarter: 2009Q1

REPORT INFORMATION
  Report Type: 
  Country: None (occurrence: None)
  Receive Date: 20090318
  Receipt Date: 20090308
  Transmission Date: 20090719
  Serious: Yes (Other)
  Sender: FDA-Public Use
  Company Number: US-JNJFOC-20090302615

PATIENT
  Age: 24 Year
  Sex: Male
  Weight: 90.72 kg

DRUGS (2)
  1. TYLENOL COLD MULTI-SYMPTOM DAYTIME CITRUS BURST [Suspect]
     Indication: COUGH
     Route: 048
  2. TYLENOL COLD MULTI-SYMPTOM DAYTIME CITRUS BURST [Suspect]
     Indication: NASOPHARYNGITIS
     Dosage: 1 COFFE MUG FULL EVERY 4-6 HOURS
     Route: 048

REACTIONS (5)
  - COUGH [None]
  - DRUG INEFFECTIVE [None]
  - INSOMNIA [None]
  - INTENTIONAL OVERDOSE [None]
  - WRONG TECHNIQUE IN DRUG USAGE PROCESS [None]
